FAERS Safety Report 10344792 (Version 2)
Quarter: 2014Q3

REPORT INFORMATION
  Report Type: Report from Study
  Country: CO (occurrence: None)
  Receive Date: 20140724
  Receipt Date: 20140729
  Transmission Date: 20150326
  Serious: Yes (Hospitalization)
  Sender: FDA-Public Use
  Company Number: 2014-20013

PATIENT
  Age: 84 Year
  Sex: Female

DRUGS (2)
  1. EYLEA [Suspect]
     Active Substance: AFLIBERCEPT
     Indication: AGE-RELATED MACULAR DEGENERATION
     Route: 031
     Dates: start: 20121201, end: 20130813
  2. NIMODIPINE. [Concomitant]
     Active Substance: NIMODIPINE

REACTIONS (3)
  - Disease complication [None]
  - Vision blurred [None]
  - Renal disorder [None]

NARRATIVE: CASE EVENT DATE: 2013
